FAERS Safety Report 4512254-1 (Version None)
Quarter: 2004Q4

REPORT INFORMATION
  Report Type: 
  Country: None (occurrence: None)
  Receive Date: 20041119
  Receipt Date: 20041110
  Transmission Date: 20050328
  Serious: Yes (Death)
  Sender: FDA-Public Use
  Company Number: USA-2004-0017107

PATIENT
  Age: 40 Year
  Sex: Male
  Weight: 95.2 kg

DRUGS (3)
  1. OXYCONTIN [Suspect]
     Indication: PAIN
  2. COCAINE (COCAINE) [Suspect]
  3. ETHANOL (ETHANOL) [Concomitant]

REACTIONS (3)
  - ACCIDENTAL DEATH [None]
  - DROWNING [None]
  - ROAD TRAFFIC ACCIDENT [None]
